FAERS Safety Report 18843816 (Version 1)
Quarter: 2021Q1

REPORT INFORMATION
  Report Type: Spontaneous
  Country: US (occurrence: US)
  Receive Date: 20210204
  Receipt Date: 20210204
  Transmission Date: 20210419
  Serious: Yes (Other)
  Sender: FDA-Public Use
  Company Number: None

PATIENT
  Age: 61 Year
  Sex: Male

DRUGS (1)
  1. METRONIDAZOLE. [Suspect]
     Active Substance: METRONIDAZOLE
     Route: 048

REACTIONS (5)
  - Cerebellar haemorrhage [None]
  - Dysarthria [None]
  - Neurotoxicity [None]
  - Asthenia [None]
  - Mental status changes [None]

NARRATIVE: CASE EVENT DATE: 20210126
